FAERS Safety Report 4610256-8 (Version None)
Quarter: 2005Q1

REPORT INFORMATION
  Report Type: 
  Country: None (occurrence: None)
  Receive Date: 20050301
  Receipt Date: 20041103
  Transmission Date: 20050727
  Serious: No
  Sender: FDA-Public Use
  Company Number: WAES 0411USA00631

PATIENT
  Sex: Male

DRUGS (3)
  1. ZETIA [Suspect]
     Dosage: PO
     Route: 048
  2. LIPITOR [Concomitant]
  3. THERAPY UNSPECIFIED [Concomitant]

REACTIONS (2)
  - DYSGEUSIA [None]
  - TONGUE COATED [None]
